FAERS Safety Report 6608458-4 (Version None)
Quarter: 2010Q1

REPORT INFORMATION
  Report Type: 
  Country: None (occurrence: None)
  Receive Date: 20100226
  Receipt Date: 20100226
  Transmission Date: 20100710
  Serious: No
  Sender: FDA-Public Use
  Company Number: None

PATIENT
  Age: 14 Year
  Sex: Male
  Weight: 68.0396 kg

DRUGS (11)
  1. LAMOTRIGINE [Suspect]
     Dosage: 200MG BID PO
     Route: 048
  2. CLONIDINE [Suspect]
     Dosage: .05MG Q HS PO
     Route: 048
  3. BENZTROPINE MESYLATE [Concomitant]
  4. DIASTAT [Concomitant]
  5. ZYDIS [Concomitant]
  6. ZONISAMIDE [Concomitant]
  7. NAMENDA [Concomitant]
  8. CIPRODEX [Concomitant]
  9. METHYLPHENIDATE [Concomitant]
  10. CONCERTA [Concomitant]
  11. BENADRYL [Concomitant]

REACTIONS (3)
  - EXCORIATION [None]
  - RASH MACULO-PAPULAR [None]
  - SUNBURN [None]
